FAERS Safety Report 15499620 (Version 1)
Quarter: 2018Q4

REPORT INFORMATION
  Report Type: Report from Study
  Country: GB (occurrence: GB)
  Receive Date: 20181015
  Receipt Date: 20181015
  Transmission Date: 20190205
  Serious: Yes (Other)
  Sender: FDA-Public Use
  Company Number: PHHY2018GB103181

PATIENT
  Sex: Male

DRUGS (1)
  1. COSENTYX [Suspect]
     Active Substance: SECUKINUMAB
     Indication: PSORIASIS
     Dosage: 300 MG, QMO
     Route: 058
     Dates: start: 20180905, end: 20181003

REACTIONS (5)
  - Hypersensitivity [Unknown]
  - Skin irritation [Unknown]
  - Contusion [Unknown]
  - Pruritus [Unknown]
  - Fatigue [Unknown]
